FAERS Safety Report 9033122 (Version 1)
Quarter: 2013Q1

REPORT INFORMATION
  Report Type: Spontaneous
  Country: FR (occurrence: FR)
  Receive Date: 20130128
  Receipt Date: 20130128
  Transmission Date: 20140127
  Serious: Yes (Hospitalization)
  Sender: FDA-Public Use
  Company Number: FR-JNJFOC-20130108675

PATIENT
  Age: 55 Year
  Sex: Female

DRUGS (6)
  1. RISPERDAL [Suspect]
     Indication: PSYCHOTIC DISORDER
     Route: 048
     Dates: start: 2012, end: 201210
  2. ABILIFY [Suspect]
     Indication: PSYCHOTIC DISORDER
     Route: 065
     Dates: end: 2012
  3. LAROXYL [Suspect]
     Indication: DEPRESSION
     Route: 048
     Dates: end: 201210
  4. AKINETON [Suspect]
     Indication: PRODUCT USED FOR UNKNOWN INDICATION
     Route: 048
     Dates: end: 201209
  5. MOPRAL [Suspect]
     Indication: GASTRODUODENAL ULCER
     Route: 048
     Dates: end: 201210
  6. HEPT-A-MYL [Suspect]
     Indication: HYPERTENSION
     Route: 048
     Dates: end: 201210

REACTIONS (1)
  - Colitis ischaemic [Recovered/Resolved]
